FAERS Safety Report 8121946-7 (Version None)
Quarter: 2012Q1

REPORT INFORMATION
  Report Type: 
  Country: None (occurrence: None)
  Receive Date: 20120207
  Receipt Date: 20120207
  Transmission Date: 20120608
  Serious: Yes (Other)
  Sender: FDA-Public Use
  Company Number: None

PATIENT
  Age: 43 Year
  Sex: Female
  Weight: 62.7 kg

DRUGS (3)
  1. GILENYA [Suspect]
     Indication: MULTIPLE SCLEROSIS
     Dosage: 0.5MG DAILY ORAL
     Route: 048
     Dates: start: 20110901, end: 20120131
  2. MULTI-VITAMIN [Concomitant]
  3. ANTIOXIDANTS [Concomitant]

REACTIONS (2)
  - ANGINA UNSTABLE [None]
  - PALPITATIONS [None]
